FAERS Safety Report 8529519-9 (Version None)
Quarter: 2012Q3

REPORT INFORMATION
  Report Type: 
  Country: None (occurrence: None)
  Receive Date: 20120723
  Receipt Date: 20120713
  Transmission Date: 20120928
  Serious: Yes (Hospitalization)
  Sender: FDA-Public Use
  Company Number: CA-JNJFOC-20120707525

PATIENT
  Sex: Female
  Weight: 44 kg

DRUGS (3)
  1. REMICADE [Suspect]
     Dosage: 27 TH INFUSION
     Route: 042
     Dates: start: 20120601
  2. REMICADE [Suspect]
     Indication: CROHN'S DISEASE
     Route: 042
     Dates: start: 20080830
  3. REMICADE [Suspect]
     Route: 042
     Dates: start: 20120713

REACTIONS (2)
  - ABDOMINAL ABSCESS [None]
  - FISTULA [None]
